FAERS Safety Report 10067798 (Version 1)
Quarter: 2014Q2

REPORT INFORMATION
  Report Type: Spontaneous
  Country: US (occurrence: US)
  Receive Date: 20140409
  Receipt Date: 20140409
  Transmission Date: 20141212
  Serious: No
  Sender: FDA-Public Use
  Company Number: US-BAYER-2014-052627

PATIENT
  Age: 58 Year
  Sex: Female
  Weight: 67.57 kg

DRUGS (2)
  1. ALEVE CAPLET [Suspect]
     Dosage: 1 DF, BID
     Route: 048
     Dates: start: 201004
  2. ATENOLOL [Concomitant]

REACTIONS (1)
  - Incorrect drug administration duration [None]
